FAERS Safety Report 9461267 (Version 1)
Quarter: 2013Q3

REPORT INFORMATION
  Report Type: Spontaneous
  Country: US (occurrence: US)
  Receive Date: 20130816
  Receipt Date: 20130816
  Transmission Date: 20140515
  Serious: No
  Sender: FDA-Public Use
  Company Number: US-PFIZER INC-2013234725

PATIENT
  Sex: 0

DRUGS (4)
  1. AXITINIB [Suspect]
     Dosage: 5 MG BID (TWICE DAILY)
     Dates: start: 20120627
  2. AXITINIB [Suspect]
     Dosage: 5 MG BID (TWICE DAILY) 2 CYCLES
     Dates: start: 201209
  3. AXITINIB [Suspect]
     Dosage: 4 MG BID (TWO CYCLES)
  4. AXITINIB [Suspect]
     Dosage: 9 MG (2 CYCLES AT 5MG/4MG=9MG DAILY DOSE)

REACTIONS (1)
  - Fatigue [Unknown]
